FAERS Safety Report 6692117-6 (Version None)
Quarter: 2010Q2

REPORT INFORMATION
  Report Type: 
  Country: None (occurrence: None)
  Receive Date: 20100422
  Receipt Date: 20090602
  Transmission Date: 20101027
  Serious: No
  Sender: FDA-Public Use
  Company Number: US-ASTRAZENECA-2009UW13876

PATIENT
  Age: 73 Year
  Sex: Female

DRUGS (4)
  1. METOPROLOL XL [Suspect]
     Route: 048
  2. PERINDOPRIL [Suspect]
  3. SPIRONOLACTONE [Suspect]
  4. HYDROCHLOROTHIAZIDE [Concomitant]

REACTIONS (1)
  - HYPERKALAEMIA [None]
